FAERS Safety Report 5469745-9 (Version None)
Quarter: 2007Q3

REPORT INFORMATION
  Report Type: 
  Country: None (occurrence: None)
  Receive Date: 20070927
  Receipt Date: 20070918
  Transmission Date: 20080115
  Serious: Yes (Hospitalization)
  Sender: FDA-Public Use
  Company Number: US-JNJFOC-20070805218

PATIENT
  Sex: Female
  Weight: 58.97 kg

DRUGS (1)
  1. REMICADE [Suspect]
     Indication: PSORIASIS

REACTIONS (9)
  - ABDOMINAL PAIN UPPER [None]
  - DYSSTASIA [None]
  - HYPOKINESIA [None]
  - PARALYSIS [None]
  - SERUM SICKNESS [None]
  - SYNCOPE [None]
  - VISUAL ACUITY REDUCED [None]
  - VOMITING [None]
  - WHEEZING [None]
